FAERS Safety Report 7889464-9 (Version None)
Quarter: 2011Q4

REPORT INFORMATION
  Report Type: 
  Country: None (occurrence: None)
  Receive Date: 20111101
  Receipt Date: 20111024
  Transmission Date: 20120403
  Serious: Yes (Other)
  Sender: FDA-Public Use
  Company Number: 2011SP041650

PATIENT
  Age: 4 Month
  Sex: Female

DRUGS (2)
  1. NUVARING [Suspect]
     Indication: FOETAL EXPOSURE DURING PREGNANCY
     Dosage: TRPL
     Route: 064
     Dates: start: 20101017
  2. PROGESTERONE [Suspect]
     Indication: FOETAL EXPOSURE DURING PREGNANCY
     Dosage: TRPL
     Route: 064
     Dates: start: 20110101

REACTIONS (5)
  - MATERNAL DRUGS AFFECTING FOETUS [None]
  - CAESAREAN SECTION [None]
  - TWIN PREGNANCY [None]
  - LACTOSE INTOLERANCE [None]
  - PREMATURE BABY [None]
